FAERS Safety Report 9588810 (Version 2)
Quarter: 2013Q4

REPORT INFORMATION
  Report Type: Spontaneous
  Country: US (occurrence: US)
  Receive Date: 20131003
  Receipt Date: 20131003
  Transmission Date: 20140711
  Serious: No
  Sender: FDA-Public Use
  Company Number: US-AMGEN-USASP2012064145

PATIENT
  Sex: Female

DRUGS (1)
  1. ENBREL [Suspect]
     Indication: RHEUMATOID ARTHRITIS
     Dosage: UNK UNK, QWK
     Dates: start: 2012, end: 201207

REACTIONS (5)
  - Therapeutic response decreased [Recovered/Resolved]
  - Nodule [Recovered/Resolved]
  - Mobility decreased [Recovered/Resolved]
  - Injection site scar [Recovered/Resolved]
  - Injection site reaction [Recovered/Resolved]
